FAERS Safety Report 6202068-9 (Version None)
Quarter: 2009Q2

REPORT INFORMATION
  Report Type: 
  Country: None (occurrence: None)
  Receive Date: 20090526
  Receipt Date: 20090512
  Transmission Date: 20091009
  Serious: Yes (Death)
  Sender: FDA-Public Use
  Company Number: B0575350A

PATIENT
  Age: 67 Year
  Sex: Female

DRUGS (3)
  1. CEFTAZIDIME [Suspect]
     Indication: FEBRILE NEUTROPENIA
     Dosage: 2G SEE DOSAGE TEXT
     Route: 065
  2. CIPROFLOXACIN HCL [Suspect]
     Indication: FEBRILE NEUTROPENIA
     Dosage: 200MG TWICE PER DAY
     Route: 065
  3. HEMODIALYSIS [Concomitant]

REACTIONS (4)
  - CARDIO-RESPIRATORY ARREST [None]
  - EXTREMITY CONTRACTURE [None]
  - STATUS EPILEPTICUS [None]
  - STUPOR [None]
